FAERS Safety Report 16475650 (Version 1)
Quarter: 2019Q2

REPORT INFORMATION
  Report Type: Spontaneous
  Country: FR (occurrence: FR)
  Receive Date: 20190625
  Receipt Date: 20190625
  Transmission Date: 20190711
  Serious: Yes (Other)
  Sender: FDA-Public Use
  Company Number: FR-MYLANLABS-2019M1058584

PATIENT
  Age: 36 Year
  Sex: Female
  Weight: 89 kg

DRUGS (1)
  1. DESLORATADINE MYLAN 0,5 MG/ML, SOLUTION BUVABLE [Suspect]
     Active Substance: DESLORATADINE
     Indication: MITE ALLERGY
     Dosage: 0.5 MG/ML /J
     Route: 048
     Dates: start: 20181212, end: 20181219

REACTIONS (3)
  - Haematochezia [Recovered/Resolved]
  - Nausea [Recovered/Resolved with Sequelae]
  - Abdominal pain upper [Recovered/Resolved]

NARRATIVE: CASE EVENT DATE: 20181215
